FAERS Safety Report 15839135 (Version 1)
Quarter: 2019Q1

REPORT INFORMATION
  Report Type: Report from Study
  Country: US (occurrence: US)
  Receive Date: 20190117
  Receipt Date: 20190117
  Transmission Date: 20190417
  Serious: No
  Sender: FDA-Public Use
  Company Number: PHEH2019US002222

PATIENT
  Sex: Male

DRUGS (1)
  1. ENTRESTO [Suspect]
     Active Substance: SACUBITRIL\VALSARTAN
     Indication: PULMONARY ARTERIAL PRESSURE
     Route: 048

REACTIONS (3)
  - Gastrointestinal bacterial overgrowth [Unknown]
  - Drug ineffective [Unknown]
  - Product use in unapproved indication [Unknown]
